FAERS Safety Report 7626021-3 (Version None)
Quarter: 2011Q3

REPORT INFORMATION
  Report Type: 
  Country: None (occurrence: None)
  Receive Date: 20110713
  Receipt Date: 20110705
  Transmission Date: 20111222
  Serious: Yes (Death)
  Sender: FDA-Public Use
  Company Number: JPI-P-015733

PATIENT
  Age: 27 Year
  Sex: Female

DRUGS (2)
  1. XYREM [Suspect]
     Indication: INSOMNIA
     Dosage: 5 GM (2.5 GM,2 IN 1 D),ORAL ; ORAL ; 13.5 GM (6.75 GM,2 IN 1 D),ORAL
     Route: 048
     Dates: start: 20051110
  2. XYREM [Suspect]
     Indication: INSOMNIA
     Dosage: 5 GM (2.5 GM,2 IN 1 D),ORAL ; ORAL ; 13.5 GM (6.75 GM,2 IN 1 D),ORAL
     Route: 048
     Dates: start: 20110510, end: 20110701

REACTIONS (1)
  - DEATH [None]
